FAERS Safety Report 8091241-3 (Version None)
Quarter: 2012Q1

REPORT INFORMATION
  Report Type: 
  Country: None (occurrence: None)
  Receive Date: 20120129
  Receipt Date: 20111025
  Transmission Date: 20120608
  Serious: No
  Sender: FDA-Public Use
  Company Number: US-ABBOTT-11P-163-0868237-00

PATIENT
  Sex: Male
  Weight: 70.37 kg

DRUGS (6)
  1. OMEPRAZOLE [Concomitant]
     Indication: GASTROOESOPHAGEAL REFLUX DISEASE
  2. HUMIRA [Suspect]
     Indication: CROHN'S DISEASE
     Dates: start: 20090101, end: 20110101
  3. HUMIRA [Suspect]
     Indication: ANKYLOSING SPONDYLITIS
     Dates: start: 20110701
  4. ZYRTEC [Concomitant]
     Indication: HYPERSENSITIVITY
  5. VITAMIN TAB [Concomitant]
     Indication: VITAMIN SUPPLEMENTATION
  6. RANITIDINE [Concomitant]
     Indication: GASTROOESOPHAGEAL REFLUX DISEASE

REACTIONS (7)
  - GASTROINTESTINAL PAIN [None]
  - NASOPHARYNGITIS [None]
  - INCORRECT DRUG DOSAGE FORM ADMINISTERED [None]
  - ABDOMINAL PAIN [None]
  - NAUSEA [None]
  - SINUS CONGESTION [None]
  - BACK PAIN [None]
